FAERS Safety Report 18927745 (Version 7)
Quarter: 2022Q3

REPORT INFORMATION
  Report Type: Report from Study
  Country: US (occurrence: US)
  Receive Date: 20210223
  Receipt Date: 20220729
  Transmission Date: 20221026
  Serious: No
  Sender: FDA-Public Use
  Company Number: NVSC2021US034634

PATIENT
  Sex: Female

DRUGS (1)
  1. XIIDRA [Suspect]
     Active Substance: LIFITEGRAST
     Indication: Dry eye
     Dosage: UNK
     Route: 065

REACTIONS (5)
  - Musculoskeletal disorder [Unknown]
  - Eye disorder [Unknown]
  - Eye irritation [Unknown]
  - Drug ineffective [Unknown]
  - Liquid product physical issue [Unknown]
